FAERS Safety Report 17773539 (Version 1)
Quarter: 2020Q2

REPORT INFORMATION
  Report Type: Report from Study
  Country: US (occurrence: US)
  Receive Date: 20200513
  Receipt Date: 20200513
  Transmission Date: 20200714
  Serious: Yes (Hospitalization)
  Sender: FDA-Public Use
  Company Number: US-ROCHE-2585094

PATIENT
  Sex: Female

DRUGS (3)
  1. ESBRIET [Suspect]
     Active Substance: PIRFENIDONE
     Indication: IDIOPATHIC PULMONARY FIBROSIS
     Dosage: TAKE 1 TABLET 3 TIMES DAILY X1 WEEK, THEN 2 TABLET 3 TIMES DAILY X1 WEEK, THEN 3 TABLET 3 TIMES DAIL
     Route: 048
  2. ASPIRIN [ACETYLSALICYLIC ACID] [Concomitant]
     Active Substance: ASPIRIN
  3. OXYGEN. [Concomitant]
     Active Substance: OXYGEN

REACTIONS (5)
  - Epistaxis [Recovered/Resolved]
  - Nasal septum deviation [Not Recovered/Not Resolved]
  - Off label use [Unknown]
  - Nasal dryness [Unknown]
  - Intentional product use issue [Unknown]
